FAERS Safety Report 9368905 (Version 1)
Quarter: 2013Q2

REPORT INFORMATION
  Report Type: Spontaneous
  Country: US (occurrence: None)
  Receive Date: 20130624
  Receipt Date: 20130624
  Transmission Date: 20140414
  Serious: Yes (Death)
  Sender: FDA-Public Use
  Company Number: 20130035

PATIENT
  Age: 49 Year
  Sex: Female

DRUGS (2)
  1. SUBSYS (FENTANYL SUBLINGUAL SPRAY) 400MCG, INSYS THERAPEUTICS [Suspect]
     Indication: CANCER PAIN
     Dosage: 400 MCG, SL, 1-2 EVERY 3H
     Route: 060
     Dates: start: 201301, end: 20130204
  2. FENTANYL PATCH 150 MCG [Concomitant]

REACTIONS (1)
  - Malignant neoplasm progression [None]
